FAERS Safety Report 7782581-3 (Version None)
Quarter: 2011Q3

REPORT INFORMATION
  Report Type: 
  Country: None (occurrence: None)
  Receive Date: 20110927
  Receipt Date: 20110927
  Transmission Date: 20111222
  Serious: No
  Sender: FDA-Public Use
  Company Number: None

PATIENT
  Sex: Male
  Weight: 111.8117 kg

DRUGS (1)
  1. ATOMOXETINE HCL [Suspect]
     Dosage: 60 MG BID P.O.
     Route: 048

REACTIONS (1)
  - HEPATIC ENZYME INCREASED [None]
